FAERS Safety Report 10336572 (Version 1)
Quarter: 2014Q3

REPORT INFORMATION
  Report Type: Spontaneous
  Country: US (occurrence: US)
  Receive Date: 20140723
  Receipt Date: 20140723
  Transmission Date: 20150326
  Serious: No
  Sender: FDA-Public Use
  Company Number: US-BRISTOL-MYERS SQUIBB COMPANY-20353009

PATIENT
  Age: 85 Year
  Sex: Male
  Weight: 81.63 kg

DRUGS (1)
  1. WARFARIN SODIUM. [Suspect]
     Active Substance: WARFARIN SODIUM
     Dosage: 1 MG 2/WEEK

REACTIONS (2)
  - Full blood count decreased [Unknown]
  - International normalised ratio decreased [Unknown]
